FAERS Safety Report 21841392 (Version 1)
Quarter: 2023Q1

REPORT INFORMATION
  Report Type: Other
  Country: US (occurrence: US)
  Receive Date: 20230110
  Receipt Date: 20230110
  Transmission Date: 20230417
  Serious: Yes (Hospitalization)
  Sender: FDA-Public Use
  Company Number: US-HLS-202300005

PATIENT
  Age: 67 Year
  Sex: Female

DRUGS (1)
  1. CLOZAPINE [Suspect]
     Active Substance: CLOZAPINE
     Indication: Schizoaffective disorder
     Route: 065

REACTIONS (5)
  - Depressive symptom [Unknown]
  - Drug ineffective [Unknown]
  - Off label use [Unknown]
  - Psychotic disorder [Unknown]
  - Stress cardiomyopathy [Unknown]
